FAERS Safety Report 5381665-7 (Version None)
Quarter: 2007Q3

REPORT INFORMATION
  Report Type: 
  Country: None (occurrence: None)
  Receive Date: 20070705
  Receipt Date: 20070705
  Transmission Date: 20080115
  Serious: Yes (Hospitalization)
  Sender: FDA-Public Use
  Company Number: None

PATIENT
  Sex: Female
  Weight: 68.04 kg

DRUGS (13)
  1. CISPLATIN [Suspect]
     Dosage: 88 MG
  2. DOXORUBICIN HYDROCHLORIDE [Suspect]
     Dosage: 78 MG
  3. G-CSF (FILGRASTIM, AMGEN) [Suspect]
  4. TAXOL [Suspect]
     Dosage: 282 MG
  5. ADVAIR DISKUS 100/50 [Concomitant]
  6. ASPIRIN [Concomitant]
  7. ATROVENT/ALBUTEROL SULFATE INHALER [Concomitant]
  8. PHENERGAN HCL [Concomitant]
  9. PREDNISONE [Concomitant]
  10. PROCRIT [Concomitant]
  11. TYLENOL [Concomitant]
  12. ZANTAC [Concomitant]
  13. ZOFRAN [Concomitant]

REACTIONS (12)
  - AORTIC ARTERIOSCLEROSIS [None]
  - AXILLARY VEIN THROMBOSIS [None]
  - BLOOD PRESSURE INCREASED [None]
  - CATHETER RELATED COMPLICATION [None]
  - CHOLELITHIASIS [None]
  - DEEP VEIN THROMBOSIS [None]
  - HEART RATE INCREASED [None]
  - HIATUS HERNIA [None]
  - PARAESTHESIA [None]
  - RENAL CYST [None]
  - SUBCLAVIAN VEIN THROMBOSIS [None]
  - VENA CAVA THROMBOSIS [None]
